FAERS Safety Report 7518856-2 (Version None)
Quarter: 2011Q2

REPORT INFORMATION
  Report Type: 
  Country: None (occurrence: None)
  Receive Date: 20110523
  Receipt Date: 20110509
  Transmission Date: 20111010
  Serious: Yes (Hospitalization)
  Sender: FDA-Public Use
  Company Number: 2011MA005698

PATIENT
  Age: 48 Year
  Sex: Female

DRUGS (3)
  1. FLUOXETINE HCL [Concomitant]
  2. IBUPROFEN [Suspect]
     Indication: TENDONITIS
  3. ALPRAZOLAM [Concomitant]

REACTIONS (10)
  - DRUG RASH WITH EOSINOPHILIA AND SYSTEMIC SYMPTOMS [None]
  - TUBULOINTERSTITIAL NEPHRITIS [None]
  - BLINDNESS [None]
  - RENAL FAILURE [None]
  - MYOCARDITIS [None]
  - HAEMODIALYSIS [None]
  - PANCREATIC DISORDER [None]
  - IRIDOCYCLITIS [None]
  - HEPATITIS [None]
  - RETINAL PIGMENT EPITHELIOPATHY [None]
